FAERS Safety Report 9592405 (Version 3)
Quarter: 2013Q4

REPORT INFORMATION
  Report Type: Report from Study
  Country: CA (occurrence: CA)
  Receive Date: 20131004
  Receipt Date: 20131211
  Transmission Date: 20140711
  Serious: Yes (Hospitalization, Other)
  Sender: FDA-Public Use
  Company Number: CA-JNJFOC-20130916590

PATIENT
  Age: 81 Year
  Sex: Male

DRUGS (1)
  1. REMICADE [Suspect]
     Indication: RHEUMATOID ARTHRITIS
     Dosage: START DATE REPORTED AS 5 YEARS PRIOR
     Route: 042
     Dates: end: 20131203

REACTIONS (2)
  - Loss of consciousness [Not Recovered/Not Resolved]
  - Endocarditis [Not Recovered/Not Resolved]
